FAERS Safety Report 26175001 (Version 1)
Quarter: 2025Q4

REPORT INFORMATION
  Report Type: Spontaneous
  Country: EU (occurrence: EU)
  Receive Date: 20251218
  Receipt Date: 20251218
  Transmission Date: 20260117
  Serious: Yes (Death)
  Sender: PFIZER
  Company Number: None

PATIENT
  Age: 49 Year
  Sex: Female
  Weight: 68 kg

DRUGS (6)
  1. PIPERACILLIN SODIUM\TAZOBACTAM SODIUM [Suspect]
     Active Substance: PIPERACILLIN SODIUM\TAZOBACTAM SODIUM
     Indication: Lung disorder
     Dosage: 12 G, DAILY
     Route: 042
     Dates: start: 20251102, end: 20251106
  2. LORAZEPAM [Concomitant]
     Active Substance: LORAZEPAM
     Dosage: UNK
  3. DEXTROSE [Concomitant]
     Active Substance: DEXTROSE MONOHYDRATE
     Dosage: 1500 ML, 1X/DAY
     Route: 042
     Dates: start: 20251102, end: 20251118
  4. ACETAMINOPHEN [Concomitant]
     Active Substance: ACETAMINOPHEN
     Dosage: 4 G
     Route: 042
     Dates: start: 20251102, end: 20251102
  5. SULFATE DE MAGNESIUM LAVOISIER [Concomitant]
     Dosage: 2 G
     Route: 042
     Dates: start: 20251102, end: 20251102
  6. POTASSIUM CHLORIDE [Concomitant]
     Active Substance: POTASSIUM CHLORIDE
     Dosage: 1 G
     Route: 042
     Dates: start: 20251102, end: 20251102

REACTIONS (1)
  - Hepatitis fulminant [Fatal]

NARRATIVE: CASE EVENT DATE: 20251108
